FAERS Safety Report 18833839 (Version 1)
Quarter: 2021Q1

REPORT INFORMATION
  Report Type: Spontaneous
  Country: US (occurrence: US)
  Receive Date: 20210203
  Receipt Date: 20210203
  Transmission Date: 20210419
  Serious: No
  Sender: FDA-Public Use
  Company Number: US-ALLERGAN-2035711US

PATIENT
  Sex: Female

DRUGS (1)
  1. BOTOX [Suspect]
     Active Substance: ONABOTULINUMTOXINA
     Indication: PRODUCT USED FOR UNKNOWN INDICATION
     Dosage: 195 UNITS, SINGLE

REACTIONS (7)
  - Lip swelling [Unknown]
  - Urticaria [Unknown]
  - Fatigue [Unknown]
  - Asthenia [Unknown]
  - Night sweats [Unknown]
  - Chills [Unknown]
  - Pyrexia [Unknown]
